FAERS Safety Report 8473543-1 (Version None)
Quarter: 2012Q2

REPORT INFORMATION
  Report Type: 
  Country: None (occurrence: None)
  Receive Date: 20120621
  Receipt Date: 20120606
  Transmission Date: 20120825
  Serious: Yes (Hospitalization, Disabling, Other)
  Sender: FDA-Public Use
  Company Number: 2011MA001481

PATIENT
  Sex: Male
  Weight: 56.6996 kg

DRUGS (126)
  1. METOCLOPRAMIDE [Suspect]
     Indication: GASTROOESOPHAGEAL REFLUX DISEASE
     Dosage: 10 MG;QID;PO
     Route: 048
     Dates: start: 20000101, end: 20081001
  2. ALLEGRA [Concomitant]
  3. AMLODIPINE [Concomitant]
  4. COLACE [Concomitant]
  5. COMBIVENT [Concomitant]
  6. EPINEPHRINE [Concomitant]
  7. LAMISIL [Concomitant]
  8. LORATADINE [Concomitant]
  9. MOTRIN [Concomitant]
  10. NAPRELAN [Concomitant]
  11. NOVOLOG [Concomitant]
  12. NSAID [Concomitant]
  13. NYSTATIN [Concomitant]
  14. PHENERGAN W/ CODEINE [Concomitant]
  15. PREVACID [Concomitant]
  16. RANITIDINE [Concomitant]
  17. VANCOMYCIN [Concomitant]
  18. ALBUTEROL [Concomitant]
  19. ALPRAZOLAM [Concomitant]
  20. CLINDAMYCIN [Concomitant]
  21. DEMEROL [Concomitant]
  22. DOXYCYCLINE HYCLATE [Concomitant]
  23. HYZAAR [Concomitant]
  24. IPRATROPIUM BROMIDE [Concomitant]
  25. NAPROSYN [Concomitant]
  26. PAMELOR [Concomitant]
  27. PERCOCET [Concomitant]
  28. REQUIP [Concomitant]
  29. STEROIDS [Concomitant]
  30. WELLBUTRIN [Concomitant]
  31. ZELNORM [Concomitant]
  32. ASPIRIN [Concomitant]
  33. CAPTOPRIL [Concomitant]
  34. CLARITIN [Concomitant]
  35. DUONEB [Concomitant]
  36. FEXOFENADINE [Concomitant]
  37. GABITRIL [Concomitant]
  38. IMODIUM [Concomitant]
  39. INH [Concomitant]
  40. LIDODERM [Concomitant]
  41. METFORMIN HCL [Concomitant]
  42. ROCEPHIN [Concomitant]
  43. TOPAMAX [Concomitant]
  44. AVALIDE [Concomitant]
  45. CIPROFLOXACIN HYDROCHLORIDE [Concomitant]
  46. DULCOLAX [Concomitant]
  47. FIORCET [Concomitant]
  48. HYCODAN [Concomitant]
  49. LAMICTAL [Concomitant]
  50. LEXAPRO [Concomitant]
  51. NASONEX [Concomitant]
  52. NEURONTIN [Concomitant]
  53. NEXIUM [Concomitant]
  54. PREDNISONE [Concomitant]
  55. PROMETHAZINE [Concomitant]
  56. PULMICORT [Concomitant]
  57. PYRIDOXINE HCL [Concomitant]
  58. ROBITUSSIN DM [Concomitant]
  59. SINGULAIR [Concomitant]
  60. SOLU-MEDROL [Concomitant]
  61. VICODIN [Concomitant]
  62. VICOTUSS [Concomitant]
  63. AVELOX [Concomitant]
  64. BACLOFEN [Concomitant]
  65. DARVOCET-N 50 [Concomitant]
  66. DECONAMINE [Concomitant]
  67. LIPITOR [Concomitant]
  68. MORPHINE [Concomitant]
  69. MUCINEX [Concomitant]
  70. SKELAXIN [Concomitant]
  71. TORADOL [Concomitant]
  72. ACETAMINOPHEN [Concomitant]
  73. AGGRENOX [Concomitant]
  74. ATARAX [Concomitant]
  75. BACTRIM [Concomitant]
  76. BENTYL [Concomitant]
  77. EPIPEN [Concomitant]
  78. FERROUS SULFATE TAB [Concomitant]
  79. GUAIFENESIN [Concomitant]
  80. HYDROCODONE [Concomitant]
  81. JANUVIA [Concomitant]
  82. KEFLEX [Concomitant]
  83. MAXALT [Concomitant]
  84. MEDROL [Concomitant]
  85. MIRAPEX [Concomitant]
  86. NORVASC [Concomitant]
  87. OMNICEF [Concomitant]
  88. OXYCONTIN [Concomitant]
  89. PAXIL [Concomitant]
  90. PRILOSEC [Concomitant]
  91. XANAX [Concomitant]
  92. ZANAFLEX [Concomitant]
  93. AZITHROMYCIN [Concomitant]
  94. BENADRYL [Concomitant]
  95. CHANTIX [Concomitant]
  96. CLOTRIMAZOLE [Concomitant]
  97. CRESTOR [Concomitant]
  98. DAYPRO [Concomitant]
  99. FENOFIBRATE [Concomitant]
  100. FLONASE [Concomitant]
  101. FLUCONAZOLE [Concomitant]
  102. HYDROCODONE BITARTRATE AND ACETAMINOPHEN [Concomitant]
  103. ISONIAZID [Concomitant]
  104. LEVAQUIN [Concomitant]
  105. LOVASTATIN [Concomitant]
  106. NOVOLIN 70/30 [Concomitant]
  107. PLAVIX [Concomitant]
  108. PROAIR HFA [Concomitant]
  109. SINUS RINSE [Concomitant]
  110. SPIRIVA [Concomitant]
  111. TESSALON [Concomitant]
  112. TYLENOL W/ CODEINE NO. 3 [Concomitant]
  113. VIBRAMYCIN [Concomitant]
  114. ZITHROMAX [Concomitant]
  115. ZANTAC [Concomitant]
  116. ADVAIR DISKUS 100/50 [Concomitant]
  117. BIAXIN [Concomitant]
  118. CAPOTEN [Concomitant]
  119. DIOVAN [Concomitant]
  120. ENTEX PSE [Concomitant]
  121. LANTUS [Concomitant]
  122. MECLIZINE [Concomitant]
  123. POLYETHYLENE GLYCOL [Concomitant]
  124. PROPRANOLOL [Concomitant]
  125. SIMVASTATIN [Concomitant]
  126. TREXIMET [Concomitant]

REACTIONS (70)
  - NEPHROLITHIASIS [None]
  - HEADACHE [None]
  - TRACHEAL PAIN [None]
  - ANXIETY [None]
  - INTERVERTEBRAL DISC DEGENERATION [None]
  - URINARY RETENTION [None]
  - NASAL SEPTUM DEVIATION [None]
  - DIZZINESS [None]
  - CEREBELLAR INFARCTION [None]
  - ERECTILE DYSFUNCTION [None]
  - ROTATOR CUFF SYNDROME [None]
  - SCAN BONE MARROW ABNORMAL [None]
  - UPPER RESPIRATORY TRACT INFECTION [None]
  - RHINITIS ALLERGIC [None]
  - HYPERLIPIDAEMIA [None]
  - CEREBRAL ARTERY STENOSIS [None]
  - CLUMSINESS [None]
  - NOCARDIOSIS [None]
  - NAUSEA [None]
  - FALL [None]
  - PNEUMONIA [None]
  - ATELECTASIS [None]
  - HYPERSENSITIVITY [None]
  - HERNIA PAIN [None]
  - PAIN [None]
  - GASTROOESOPHAGEAL REFLUX DISEASE [None]
  - ANAPHYLACTIC REACTION [None]
  - MUSCLE SPASMS [None]
  - ACTINOMYCES TEST POSITIVE [None]
  - DIVERTICULUM [None]
  - VASCULAR CALCIFICATION [None]
  - BURSITIS [None]
  - ULCER [None]
  - TONGUE ULCERATION [None]
  - IRON DEFICIENCY [None]
  - ABDOMINAL DISCOMFORT [None]
  - NEURITIS [None]
  - OROPHARYNGEAL PAIN [None]
  - NECK PAIN [None]
  - GASTRITIS [None]
  - OTITIS MEDIA [None]
  - NUCLEAR MAGNETIC RESONANCE IMAGING BRAIN ABNORMAL [None]
  - MIDDLE INSOMNIA [None]
  - FATIGUE [None]
  - BALANITIS CANDIDA [None]
  - MYCOBACTERIAL INFECTION [None]
  - LIGAMENT SPRAIN [None]
  - BRONCHITIS [None]
  - VOMITING [None]
  - PLEURAL FIBROSIS [None]
  - PRODUCTIVE COUGH [None]
  - TETANY [None]
  - ARTERIOSCLEROSIS [None]
  - PARAESTHESIA [None]
  - MUSCULOSKELETAL PAIN [None]
  - HYPOAESTHESIA [None]
  - PAIN IN EXTREMITY [None]
  - HYDROCEPHALUS [None]
  - POLLAKIURIA [None]
  - INSOMNIA [None]
  - RESTLESS LEGS SYNDROME [None]
  - ATAXIA [None]
  - BACK PAIN [None]
  - SINUSITIS [None]
  - ARTHRALGIA [None]
  - CHRONIC OBSTRUCTIVE PULMONARY DISEASE [None]
  - SPINAL OSTEOARTHRITIS [None]
  - CEREBRAL VENTRICLE DILATATION [None]
  - VERTIGO POSITIONAL [None]
  - CEREBELLAR SYNDROME [None]
